FAERS Safety Report 7326492-6 (Version None)
Quarter: 2011Q1

REPORT INFORMATION
  Report Type: 
  Country: None (occurrence: None)
  Receive Date: 20110302
  Receipt Date: 20110218
  Transmission Date: 20110831
  Serious: Yes (Other)
  Sender: FDA-Public Use
  Company Number: US-SANOFI-AVENTIS-2011SA011389

PATIENT
  Age: 67 Year
  Sex: Male

DRUGS (2)
  1. PLAVIX [Suspect]
     Route: 048
     Dates: start: 20070701
  2. PLAVIX [Suspect]
     Route: 048

REACTIONS (5)
  - HYPERTENSION [None]
  - RENAL ARTERY OCCLUSION [None]
  - ABDOMINAL DISCOMFORT [None]
  - CORONARY ARTERY OCCLUSION [None]
  - CEREBROVASCULAR ACCIDENT [None]
